FAERS Safety Report 8132533-9 (Version None)
Quarter: 2012Q1

REPORT INFORMATION
  Report Type: 
  Country: None (occurrence: None)
  Receive Date: 20120103
  Receipt Date: 20111115
  Transmission Date: 20120608
  Serious: No
  Sender: FDA-Public Use
  Company Number: AE-2011-003537

PATIENT
  Age: 45 Year
  Sex: Male

DRUGS (3)
  1. INCIVEK [Suspect]
     Dosage: 2250 MG (750 MG,3 IN 1 D),ORAL
     Route: 048
     Dates: start: 20110801, end: 20111111
  2. PEGASYS (PERGINTERFERON ALFA-2A) [Concomitant]
  3. COPEGUS [Concomitant]

REACTIONS (1)
  - PRURITUS [None]
